FAERS Safety Report 4682143-0 (Version None)
Quarter: 2005Q2

REPORT INFORMATION
  Report Type: 
  Country: None (occurrence: None)
  Receive Date: 20050603
  Receipt Date: 20050603
  Transmission Date: 20051028
  Serious: No
  Sender: FDA-Public Use
  Company Number: None

PATIENT
  Age: 42 Year
  Sex: Female
  Weight: 102.0593 kg

DRUGS (1)
  1. ATENOLOL [Suspect]
     Indication: PALPITATIONS
     Dosage: 25 MG 1X DAY
     Dates: start: 20050331, end: 20050430

REACTIONS (5)
  - ALOPECIA [None]
  - DIFFICULTY IN WALKING [None]
  - DYSSTASIA [None]
  - JOINT SWELLING [None]
  - OEDEMA PERIPHERAL [None]
